FAERS Safety Report 8492155-7 (Version None)
Quarter: 2012Q3

REPORT INFORMATION
  Report Type: 
  Country: None (occurrence: None)
  Receive Date: 20120706
  Receipt Date: 20120705
  Transmission Date: 20120928
  Serious: Yes (Other)
  Sender: FDA-Public Use
  Company Number: RO-ROCHE-1066379

PATIENT
  Sex: Male
  Weight: 76 kg

DRUGS (6)
  1. COPEGUS [Suspect]
     Dates: start: 20110909, end: 20110914
  2. BLINDED ALISPORIVIR [Suspect]
     Indication: HEPATITIS C
     Route: 048
     Dates: start: 20110822
  3. PEGASYS [Suspect]
     Indication: HEPATITIS C
     Route: 065
     Dates: start: 20110822
  4. PEGASYS [Suspect]
     Dates: start: 20110909, end: 20110914
  5. BLINDED ALISPORIVIR [Suspect]
     Dates: start: 20110909, end: 20110914
  6. COPEGUS [Suspect]
     Indication: HEPATITIS C
     Dates: start: 20110822

REACTIONS (1)
  - ALANINE AMINOTRANSFERASE INCREASED [None]
